FAERS Safety Report 6715322-9 (Version None)
Quarter: 2010Q2

REPORT INFORMATION
  Report Type: 
  Country: None (occurrence: None)
  Receive Date: 20100507
  Receipt Date: 20100503
  Transmission Date: 20101027
  Serious: Yes (Other)
  Sender: FDA-Public Use
  Company Number: US-BRISTOL-MYERS SQUIBB COMPANY-15081128

PATIENT
  Age: 52 Year

DRUGS (17)
  1. EFAVIRENZ TABS [Suspect]
     Route: 048
  2. STAVUDINE [Suspect]
     Route: 065
  3. DIDANOSINE [Suspect]
     Route: 065
  4. RALTEGRAVIR [Suspect]
     Dosage: TAB
     Route: 048
  5. NELFINAVIR MESYLATE [Suspect]
     Route: 065
  6. ZIDOVUDINE [Suspect]
     Route: 065
  7. LAMIVUDINE [Suspect]
     Route: 065
  8. ABACAVIR SULFATE [Suspect]
     Route: 065
  9. LOPINAVIR [Suspect]
     Route: 065
  10. TENOFOVIR DISOPROXIL FUMARATE [Suspect]
     Route: 065
  11. ETRAVIRINE [Suspect]
     Route: 065
  12. DARUNAVIR [Suspect]
     Route: 065
  13. RITONAVIR [Suspect]
     Route: 065
  14. NEVIRAPINE [Suspect]
     Route: 065
  15. DELAVIRDINE MESYLATE [Suspect]
     Route: 065
  16. INDINIVIR SULFATE [Suspect]
     Route: 065
  17. SAQUINAVIR [Suspect]
     Route: 065

REACTIONS (5)
  - DIPLOPIA [None]
  - EYELID PTOSIS [None]
  - LIPODYSTROPHY ACQUIRED [None]
  - MITOCHONDRIAL TOXICITY [None]
  - PROGRESSIVE EXTERNAL OPHTHALMOPLEGIA [None]
